FAERS Safety Report 5493296-9 (Version None)
Quarter: 2007Q4

REPORT INFORMATION
  Report Type: 
  Country: None (occurrence: None)
  Receive Date: 20071023
  Receipt Date: 20060925
  Transmission Date: 20080405
  Serious: Yes (Other)
  Sender: FDA-Public Use
  Company Number: US-BRISTOL-MYERS SQUIBB COMPANY-13520192

PATIENT

DRUGS (1)
  1. KENALOG-40 [Suspect]
     Dosage: ADDITIONAL LOT# REPORTED 6C13355 EXPIRATION DATE NOT AVAILABLE

REACTIONS (1)
  - INFECTION [None]
